FAERS Safety Report 5869284-7 (Version None)
Quarter: 2008Q3

REPORT INFORMATION
  Report Type: 
  Country: None (occurrence: None)
  Receive Date: 20080818
  Receipt Date: 20080411
  Transmission Date: 20090109
  Serious: No
  Sender: FDA-Public Use
  Company Number: 20085029

PATIENT
  Sex: Female

DRUGS (1)
  1. LIORESAL [Suspect]
     Indication: MUSCLE SPASTICITY
     Dosage: 40.06 MCG/DAY

REACTIONS (3)
  - DYSPNOEA [None]
  - NAUSEA [None]
  - PAIN [None]
